FAERS Safety Report 8148824-1 (Version None)
Quarter: 2012Q1

REPORT INFORMATION
  Report Type: 
  Country: None (occurrence: None)
  Receive Date: 20120218
  Receipt Date: 20110718
  Transmission Date: 20120608
  Serious: No
  Sender: FDA-Public Use
  Company Number: US-ALLERGAN-1109700US

PATIENT
  Age: 47 Year
  Sex: Female

DRUGS (1)
  1. BOTULINUM TOXIN TYPE A [Suspect]
     Indication: PRODUCT USED FOR UNKNOWN INDICATION
     Dosage: UNK
     Dates: start: 20100831, end: 20100831

REACTIONS (5)
  - DIARRHOEA [None]
  - SYMPATHOMIMETIC EFFECT [None]
  - ANXIETY [None]
  - TREMOR [None]
  - MUSCLE TWITCHING [None]
